FAERS Safety Report 7142610-7 (Version None)
Quarter: 2010Q4

REPORT INFORMATION
  Report Type: 
  Country: None (occurrence: None)
  Receive Date: 20101207
  Receipt Date: 20101203
  Transmission Date: 20110411
  Serious: No
  Sender: FDA-Public Use
  Company Number: US-B.I. PHARMACEUTICALS,INC./RIDGEFIELD-2010-BP-13782BP

PATIENT
  Sex: Female

DRUGS (1)
  1. SPIRIVA [Suspect]
     Indication: CHRONIC OBSTRUCTIVE PULMONARY DISEASE
     Dosage: 18 MCG
     Route: 055
     Dates: start: 20101001, end: 20101129

REACTIONS (6)
  - DRY MOUTH [None]
  - DYSPHONIA [None]
  - LARYNGITIS [None]
  - NAUSEA [None]
  - NON-CARDIAC CHEST PAIN [None]
  - ORAL PAIN [None]
